FAERS Safety Report 25028947 (Version 1)
Quarter: 2025Q1

REPORT INFORMATION
  Report Type: Report from Study
  Country: CA (occurrence: CA)
  Receive Date: 20250302
  Receipt Date: 20250302
  Transmission Date: 20250409
  Serious: Yes (Other)
  Sender: JOHNSON AND JOHNSON
  Company Number: CA-JNJFOC-20250279592

PATIENT
  Age: 17 Year
  Sex: Male

DRUGS (1)
  1. REMICADE [Suspect]
     Active Substance: INFLIXIMAB
     Indication: Colitis ulcerative
     Dosage: EXPIRY DATE: MA-2027
     Route: 041
     Dates: start: 20210812

REACTIONS (4)
  - Pneumothorax spontaneous [Recovering/Resolving]
  - Syncope [Unknown]
  - Hypoglycaemia [Unknown]
  - Off label use [Unknown]

NARRATIVE: CASE EVENT DATE: 20250210
